FAERS Safety Report 25470700 (Version 1)
Quarter: 2025Q2

REPORT INFORMATION
  Report Type: Spontaneous
  Country: US (occurrence: US)
  Receive Date: 20250624
  Receipt Date: 20250624
  Transmission Date: 20250716
  Serious: No
  Sender: ROCHE
  Company Number: US-ROCHE-10000317141

PATIENT
  Sex: Male

DRUGS (5)
  1. ACTEMRA ACTPEN [Suspect]
     Active Substance: TOCILIZUMAB
     Indication: Rheumatoid arthritis
     Route: 058
     Dates: start: 202408
  2. HYDROXYZINE PAMOATE [Concomitant]
     Active Substance: HYDROXYZINE PAMOATE
  3. OFEV [Concomitant]
     Active Substance: NINTEDANIB
  4. ENBREL [Concomitant]
     Active Substance: ETANERCEPT
  5. FOLIC ACID [Concomitant]
     Active Substance: FOLIC ACID

REACTIONS (4)
  - Rash pruritic [Unknown]
  - Drug ineffective [Unknown]
  - Pain [Unknown]
  - Hypersensitivity [Unknown]
